FAERS Safety Report 11087669 (Version 1)
Quarter: 2015Q2

REPORT INFORMATION
  Report Type: Spontaneous
  Country: SE (occurrence: SE)
  Receive Date: 20150504
  Receipt Date: 20150504
  Transmission Date: 20150821
  Serious: Yes (Other)
  Sender: FDA-Public Use
  Company Number: SE-AMGEN-SWESP2015041806

PATIENT
  Age: 69 Year
  Sex: Female

DRUGS (6)
  1. BONDRONAT /01304702/ [Suspect]
     Active Substance: IBANDRONATE SODIUM
     Indication: BREAST CANCER
     Dosage: UNK, QD
     Route: 065
     Dates: start: 201202, end: 2012
  2. HERCEPTIN [Concomitant]
     Active Substance: TRASTUZUMAB
  3. CALCICHEW D3 [Concomitant]
     Active Substance: CALCIUM\CHOLECALCIFEROL
  4. FLUANXOL                           /00109702/ [Concomitant]
     Active Substance: FLUPENTIXOL
     Dosage: 0.5 MG, UNK
  5. XGEVA [Suspect]
     Active Substance: DENOSUMAB
     Indication: BREAST CANCER
     Dosage: 120 MG, Q4WK
     Route: 058
     Dates: start: 2012, end: 20150330
  6. CITALOPRAM [Concomitant]
     Active Substance: CITALOPRAM HYDROBROMIDE
     Dosage: 20 MG, UNK

REACTIONS (1)
  - Osteonecrosis [Not Recovered/Not Resolved]

NARRATIVE: CASE EVENT DATE: 20150330
